FAERS Safety Report 11598887 (Version 1)
Quarter: 2015Q4

REPORT INFORMATION
  Report Type: Spontaneous
  Country: US (occurrence: US)
  Receive Date: 20151006
  Receipt Date: 20151006
  Transmission Date: 20160304
  Serious: No
  Sender: FDA-Public Use
  Company Number: US-ELI_LILLY_AND_COMPANY-US201510001593

PATIENT
  Age: 82 Year
  Sex: Male

DRUGS (3)
  1. HUMALOG [Suspect]
     Active Substance: INSULIN LISPRO
     Indication: TYPE 2 DIABETES MELLITUS
     Dosage: 4 U, BID
     Route: 058
     Dates: start: 20150930, end: 20151005
  2. HUMALOG [Suspect]
     Active Substance: INSULIN LISPRO
     Dosage: .83 U, EVERY HOUR
     Route: 058
     Dates: start: 20150930, end: 20151005
  3. HUMALOG [Suspect]
     Active Substance: INSULIN LISPRO
     Dosage: 2 U, QD
     Route: 058
     Dates: start: 20150930, end: 20151005

REACTIONS (4)
  - Insomnia [Unknown]
  - Parosmia [Unknown]
  - Dysgeusia [Unknown]
  - Decreased appetite [Unknown]

NARRATIVE: CASE EVENT DATE: 20151002
